FAERS Safety Report 9604172 (Version 2)
Quarter: 2013Q4

REPORT INFORMATION
  Report Type: Spontaneous
  Country: US (occurrence: US)
  Receive Date: 20131008
  Receipt Date: 20131008
  Transmission Date: 20140711
  Serious: Yes (Disabling, Other)
  Sender: FDA-Public Use
  Company Number: US-ACCORD-019717

PATIENT
  Age: 23 Year
  Sex: Male

DRUGS (2)
  1. METHADONE [Suspect]
  2. NALTREXONE [Suspect]
     Indication: REHABILITATION THERAPY

REACTIONS (3)
  - Overdose [Unknown]
  - Respiratory arrest [Unknown]
  - Deafness neurosensory [Not Recovered/Not Resolved]
